FAERS Safety Report 4263688-4 (Version None)
Quarter: 2004Q1

REPORT INFORMATION
  Report Type: 
  Country: None (occurrence: None)
  Receive Date: 20040102
  Receipt Date: 20031223
  Transmission Date: 20041129
  Serious: Yes (Other)
  Sender: FDA-Public Use
  Company Number: USA031255025

PATIENT
  Age: 65 Year
  Sex: Female
  Weight: 80 kg

DRUGS (3)
  1. FORTEO [Suspect]
     Dates: start: 20030101, end: 20030901
  2. ULTRACET [Concomitant]
  3. FOSAMAX [Concomitant]

REACTIONS (4)
  - ACOUSTIC NEUROMA [None]
  - BLOOD ALKALINE PHOSPHATASE INCREASED [None]
  - BONE PAIN [None]
  - OSTEITIS DEFORMANS [None]
